FAERS Safety Report 21178506 (Version 3)
Quarter: 2022Q4

REPORT INFORMATION
  Report Type: Other
  Country: DE (occurrence: None)
  Receive Date: 20220805
  Receipt Date: 20221013
  Transmission Date: 20230112
  Serious: No
  Sender: FDA-Public Use
  Company Number: DE-ROCHE-3152598

PATIENT
  Age: 44 Year
  Sex: Male

DRUGS (7)
  1. OCRELIZUMAB [Suspect]
     Active Substance: OCRELIZUMAB
     Indication: Primary progressive multiple sclerosis
     Route: 042
     Dates: start: 20201001, end: 20201015
  2. OCRELIZUMAB [Suspect]
     Active Substance: OCRELIZUMAB
     Route: 042
     Dates: start: 20210415
  3. DIMETHINDENE [Concomitant]
     Active Substance: DIMETHINDENE
     Indication: Premedication
     Dosage: DEFINITION OF THE INTERVAL: AS REQUIRED
     Route: 042
     Dates: start: 20201001
  4. ACETAMINOPHEN [Concomitant]
     Active Substance: ACETAMINOPHEN
     Indication: Premedication
     Dosage: DEFINITION OF THE INTERVAL: AS REQUIRED
     Route: 048
     Dates: start: 20201001
  5. PREDNISOLONE [Concomitant]
     Active Substance: PREDNISOLONE
     Indication: Premedication
     Dosage: DEFINITION OF THE INTERVAL: AS REQUIRED
     Route: 042
     Dates: start: 20201001
  6. CHOLECALCIFEROL [Concomitant]
     Active Substance: CHOLECALCIFEROL
     Indication: Prophylaxis
     Route: 048
     Dates: start: 20201016
  7. CITALOPRAM [Concomitant]
     Active Substance: CITALOPRAM HYDROBROMIDE
     Route: 048
     Dates: start: 20211101

REACTIONS (1)
  - Coronavirus infection [Recovered/Resolved]

NARRATIVE: CASE EVENT DATE: 20220601
